FAERS Safety Report 5065655-X (Version None)
Quarter: 2006Q3

REPORT INFORMATION
  Report Type: 
  Country: None (occurrence: None)
  Receive Date: 20060731
  Receipt Date: 20060719
  Transmission Date: 20061208
  Serious: Yes (Hospitalization)
  Sender: FDA-Public Use
  Company Number: DE-ABBOTT-06P-062-0338448-00

PATIENT
  Sex: Female
  Weight: 62 kg

DRUGS (5)
  1. KALETRA [Suspect]
     Indication: HIV INFECTION
     Route: 048
     Dates: start: 20060317
  2. TRUVADA [Suspect]
     Indication: HIV INFECTION
     Dosage: 200 MG/245 MG
     Route: 048
     Dates: start: 20060317, end: 20060719
  3. COTRIM [Concomitant]
     Indication: ANTIBIOTIC PROPHYLAXIS
     Route: 048
     Dates: start: 20060317
  4. COTRIM DS [Concomitant]
     Indication: ANTIBIOTIC PROPHYLAXIS
     Route: 048
     Dates: start: 20060317
  5. CALCIUM GLUCONATE [Concomitant]
     Indication: DRUG USE FOR UNKNOWN INDICATION
     Route: 048

REACTIONS (14)
  - ARTHRALGIA [None]
  - BLOOD CREATININE INCREASED [None]
  - CHILLS [None]
  - CHOLELITHIASIS [None]
  - CHOLESTASIS [None]
  - DIARRHOEA [None]
  - HYPOALBUMINAEMIA [None]
  - JAUNDICE [None]
  - LIVER DISORDER [None]
  - MYCOBACTERIUM AVIUM COMPLEX INFECTION [None]
  - NIGHT SWEATS [None]
  - OEDEMA PERIPHERAL [None]
  - POLYSEROSITIS [None]
  - PYREXIA [None]
